FAERS Safety Report 9009918 (Version 1)
Quarter: 2013Q1

REPORT INFORMATION
  Report Type: Spontaneous
  Country: US (occurrence: US)
  Receive Date: 20130112
  Receipt Date: 20130112
  Transmission Date: 20140127
  Serious: Yes (Hospitalization)
  Sender: FDA-Public Use
  Company Number: US-009507513-1301USA003851

PATIENT
  Age: 73 Year
  Sex: Female

DRUGS (7)
  1. SINGULAIR [Suspect]
     Indication: ASTHMA
     Dosage: 1 TAB QD
  2. SINGULAIR [Suspect]
     Indication: HYPERTENSION
  3. BUDESONIDE [Suspect]
     Dosage: 200MCG TWICE PER DAY
     Route: 055
  4. ISOPTIN [Suspect]
     Dosage: 1 TAB PER DAY
     Route: 048
  5. MICARDIS [Suspect]
     Dosage: 1 TAB PER DAY
     Route: 048
  6. VENTOLIN (ALBUTEROL) [Suspect]
     Route: 055
  7. SEREVENT [Suspect]
     Dosage: 1 PUFF TWICE PER DAY
     Route: 055

REACTIONS (3)
  - Eczema impetiginous [Unknown]
  - Photosensitivity reaction [Unknown]
  - Drug hypersensitivity [Unknown]
